FAERS Safety Report 9829100 (Version 4)
Quarter: 2014Q3

REPORT INFORMATION
  Report Type: Spontaneous
  Country: US (occurrence: US)
  Receive Date: 20140119
  Receipt Date: 20140822
  Transmission Date: 20150326
  Serious: No
  Sender: FDA-Public Use
  Company Number: US-009507513-1401USA004990

PATIENT
  Sex: Male
  Weight: 94.79 kg

DRUGS (2)
  1. PROPECIA [Suspect]
     Active Substance: FINASTERIDE
     Indication: DIFFUSE ALOPECIA
  2. PROPECIA [Suspect]
     Active Substance: FINASTERIDE
     Indication: ALOPECIA
     Dosage: 1 MG, QD
     Route: 048
     Dates: start: 20071004, end: 20090925

REACTIONS (9)
  - Erectile dysfunction [Not Recovered/Not Resolved]
  - Asthenospermia [Unknown]
  - Rhinitis allergic [Unknown]
  - Libido decreased [Not Recovered/Not Resolved]
  - Ingrowing nail [Unknown]
  - Semen volume decreased [Not Recovered/Not Resolved]
  - Sexual dysfunction [Not Recovered/Not Resolved]
  - Seborrhoeic dermatitis [Unknown]
  - Erection increased [Not Recovered/Not Resolved]

NARRATIVE: CASE EVENT DATE: 2007
